FAERS Safety Report 4333880-9 (Version None)
Quarter: 2004Q2

REPORT INFORMATION
  Report Type: 
  Country: None (occurrence: None)
  Receive Date: 20040402
  Receipt Date: 20040402
  Transmission Date: 20050107
  Serious: Yes (Hospitalization)
  Sender: FDA-Public Use
  Company Number: None

PATIENT
  Age: 39 Year
  Sex: Female
  Weight: 101.8 kg

DRUGS (2)
  1. ENALAPRILAT [Suspect]
     Indication: HYPERTENSION
     Dosage: 1.25 MG ONCE IV
     Route: 042
     Dates: start: 20040331, end: 20040331
  2. ENALAPRILAT [Suspect]

REACTIONS (3)
  - BRADYCARDIA [None]
  - CARDIAC ARREST [None]
  - DIZZINESS [None]
